FAERS Safety Report 21976372 (Version 1)
Quarter: 2023Q1

REPORT INFORMATION
  Report Type: Spontaneous
  Country: US (occurrence: US)
  Receive Date: 20230210
  Receipt Date: 20230210
  Transmission Date: 20230418
  Serious: No
  Sender: FDA-Public Use
  Company Number: US-ABBVIE-4271403

PATIENT
  Sex: Female

DRUGS (1)
  1. HUMIRA [Suspect]
     Active Substance: ADALIMUMAB
     Indication: Product used for unknown indication
     Dosage: FORM STRENGTH 40 MILLIGRAM
     Route: 058

REACTIONS (3)
  - Device issue [Not Recovered/Not Resolved]
  - Injection site pain [Unknown]
  - Injection site bruising [Unknown]
